FAERS Safety Report 6850860-X (Version None)
Quarter: 2010Q3

REPORT INFORMATION
  Report Type: 
  Country: None (occurrence: None)
  Receive Date: 20100716
  Receipt Date: 20071221
  Transmission Date: 20110219
  Serious: Yes (Other)
  Sender: FDA-Public Use
  Company Number: US-PFIZER INC-2007089665

PATIENT
  Age: 36 Year
  Sex: Female
  Weight: 61.2 kg

DRUGS (1)
  1. CHANTIX [Suspect]
     Indication: SMOKING CESSATION THERAPY
     Dates: start: 20070915, end: 20071007

REACTIONS (6)
  - ARTHRALGIA [None]
  - FATIGUE [None]
  - MYALGIA [None]
  - PAIN [None]
  - SWELLING [None]
  - WEIGHT INCREASED [None]
